FAERS Safety Report 7983366-5 (Version None)
Quarter: 2011Q4

REPORT INFORMATION
  Report Type: 
  Country: None (occurrence: None)
  Receive Date: 20111215
  Receipt Date: 20111212
  Transmission Date: 20120403
  Serious: Yes (Life-Threatening, Other)
  Sender: FDA-Public Use
  Company Number: US-CELGENEUS-163-21880-11102321

PATIENT
  Sex: Female
  Weight: 52.664 kg

DRUGS (7)
  1. REVLIMID [Suspect]
     Dosage: 10 MILLIGRAM
     Route: 048
     Dates: start: 20110101, end: 20110413
  2. NAUSEA MEDICATIONS [Concomitant]
     Route: 065
  3. REVLIMID [Suspect]
     Dosage: 10 MILLIGRAM
     Route: 048
     Dates: start: 20110127, end: 20110202
  4. PAIN MEDICATIONS [Concomitant]
     Route: 065
  5. BLOOD PRESSURE MEDICATIONS [Concomitant]
     Route: 065
  6. ZOMETA [Concomitant]
     Route: 065
  7. REVLIMID [Suspect]
     Dosage: 10 MILLIGRAM
     Route: 048
     Dates: start: 20111014, end: 20111110

REACTIONS (5)
  - DIARRHOEA [None]
  - PETECHIAE [None]
  - PANCYTOPENIA [None]
  - MULTIPLE MYELOMA [None]
  - PRURITUS [None]
